FAERS Safety Report 4791182-0 (Version None)
Quarter: 2005Q4

REPORT INFORMATION
  Report Type: 
  Country: None (occurrence: None)
  Receive Date: 20051005
  Receipt Date: 20050916
  Transmission Date: 20060501
  Serious: Yes (Life-Threatening)
  Sender: FDA-Public Use
  Company Number: 2005RR-00741

PATIENT
  Age: 82 Year
  Sex: Female

DRUGS (9)
  1. ASPIRIN [Suspect]
     Dosage: 75 MG, QD, ORAL
     Route: 048
     Dates: end: 20050909
  2. WARFARIN SODIUM [Suspect]
     Dosage: QD, ORAL
     Route: 048
     Dates: start: 20050906
  3. ATENOLOL [Concomitant]
  4. PRAVASTATIN SODIUM TABLET (PRAVASTATIN) [Concomitant]
  5. SENNA TABLET [Concomitant]
  6. SIMVASTATIN (SIMVASTATIN) TABLET [Concomitant]
  7. ACETAMINOPHEN [Concomitant]
  8. DIGOXIN [Concomitant]
  9. ENOXAPARIN SODIUM [Concomitant]

REACTIONS (1)
  - GASTROINTESTINAL HAEMORRHAGE [None]
